FAERS Safety Report 9435573 (Version 1)
Quarter: 2013Q3

REPORT INFORMATION
  Report Type: Spontaneous
  Country: US (occurrence: None)
  Receive Date: 20130730
  Receipt Date: 20130730
  Transmission Date: 20140515
  Serious: Yes (Hospitalization)
  Sender: FDA-Public Use
  Company Number: 2013P1012938

PATIENT
  Age: 31 Year
  Sex: Male
  Weight: 168.5 kg

DRUGS (4)
  1. VANCOMYCIN [Suspect]
     Indication: SKIN ULCER
     Route: 042
  2. CEFEPIME [Concomitant]
  3. METRONIDAZOLE [Concomitant]
  4. PIPERACILLIN/TAZOBACTAM [Concomitant]

REACTIONS (4)
  - Renal tubular necrosis [None]
  - Haemodialysis [None]
  - Fluid overload [None]
  - Nephropathy toxic [None]
